FAERS Safety Report 25191604 (Version 1)
Quarter: 2025Q2

REPORT INFORMATION
  Report Type: Spontaneous
  Country: US (occurrence: None)
  Receive Date: 20250411
  Receipt Date: 20250411
  Transmission Date: 20250716
  Serious: Yes (Disabling)
  Sender: FDA-CTU
  Company Number: None

PATIENT
  Age: 57 Year
  Sex: Female
  Weight: 87.75 kg

DRUGS (6)
  1. TRANEXAMIC ACID [Suspect]
     Active Substance: TRANEXAMIC ACID
     Indication: Chloasma
     Dates: start: 20240401, end: 20250401
  2. NORVASC [Concomitant]
     Active Substance: AMLODIPINE BESYLATE
  3. CELEBREX [Concomitant]
     Active Substance: CELECOXIB
  4. Rousuvastatin [Concomitant]
  5. BEANO [Concomitant]
     Active Substance: ASPERGILLUS NIGER .ALPHA.-GALACTOSIDASE
  6. HERBALS\WITHANIA SOMNIFERA ROOT [Concomitant]
     Active Substance: HERBALS\WITHANIA SOMNIFERA ROOT

REACTIONS (2)
  - Cataract [None]
  - Adverse drug reaction [None]

NARRATIVE: CASE EVENT DATE: 20250405
